FAERS Safety Report 19992689 (Version 1)
Quarter: 2021Q4

REPORT INFORMATION
  Report Type: Spontaneous
  Country: US (occurrence: US)
  Receive Date: 20211026
  Receipt Date: 20211026
  Transmission Date: 20220303
  Serious: Yes (Other)
  Sender: FDA-Public Use
  Company Number: US-AUROBINDO-AUR-APL-2021-043095

PATIENT
  Age: 28 Year
  Sex: Male

DRUGS (22)
  1. LAMIVUDINE [Suspect]
     Active Substance: LAMIVUDINE
     Indication: Hepatitis B
     Dosage: 100 MILLIGRAM, DAILY
     Route: 065
  2. LAMIVUDINE [Suspect]
     Active Substance: LAMIVUDINE
     Indication: Hepatitis E
  3. CEFUROXIME AXETIL [Suspect]
     Active Substance: CEFUROXIME AXETIL
     Indication: Hepatitis B
     Dosage: 500 MILLIGRAM, TWO TIMES A DAY
     Route: 065
  4. CEFUROXIME AXETIL [Suspect]
     Active Substance: CEFUROXIME AXETIL
     Indication: Hepatitis E
  5. ALBUMIN HUMAN [Suspect]
     Active Substance: ALBUMIN HUMAN
     Indication: Hepatitis E
     Dosage: 100 MILLILITRE PER KILOGRAM, DAILY
  6. ALBUMIN HUMAN [Suspect]
     Active Substance: ALBUMIN HUMAN
     Indication: Hepatitis B
  7. GLYCYRRHIZIN [Suspect]
     Active Substance: GLYCYRRHIZIN
     Indication: Hepatitis E
     Dosage: 60 MILLILITRE PER KILOGRAM, DAILY
     Route: 042
  8. GLYCYRRHIZIN [Suspect]
     Active Substance: GLYCYRRHIZIN
     Indication: Hepatitis B
  9. LYCOPODIUM CLAVATUM [Suspect]
     Active Substance: HOMEOPATHICS
     Indication: Hepatitis E
     Dosage: UNK
     Route: 065
  10. LYCOPODIUM CLAVATUM [Suspect]
     Active Substance: HOMEOPATHICS
     Indication: Hepatitis B
  11. DIETARY SUPPLEMENT\HERBALS\MILK THISTLE [Suspect]
     Active Substance: DIETARY SUPPLEMENT\HERBALS\MILK THISTLE
     Indication: Hepatitis B
     Dosage: UNK
     Route: 065
  12. DIETARY SUPPLEMENT\HERBALS\MILK THISTLE [Suspect]
     Active Substance: DIETARY SUPPLEMENT\HERBALS\MILK THISTLE
     Indication: Hepatitis E
  13. ATROPA BELLADONNA\HOMEOPATHICS [Suspect]
     Active Substance: ATROPA BELLADONNA\HOMEOPATHICS
     Indication: Hepatitis B
     Dosage: UNK
     Route: 065
  14. ATROPA BELLADONNA\HOMEOPATHICS [Suspect]
     Active Substance: ATROPA BELLADONNA\HOMEOPATHICS
     Indication: Hepatitis E
  15. CHELIDONIUM MAJUS [Suspect]
     Active Substance: CHELIDONIUM MAJUS
     Indication: Hepatitis E
     Dosage: UNK
     Route: 065
  16. CHELIDONIUM MAJUS [Suspect]
     Active Substance: CHELIDONIUM MAJUS
     Indication: Hepatitis B
  17. THUJA OCCIDENTALIS [Suspect]
     Active Substance: HOMEOPATHICS
     Indication: Hepatitis B
     Dosage: UNK
     Route: 065
  18. THUJA OCCIDENTALIS [Suspect]
     Active Substance: HOMEOPATHICS
     Indication: Hepatitis E
  19. FUROSEMIDE\SPIRONOLACTONE [Suspect]
     Active Substance: FUROSEMIDE\SPIRONOLACTONE
     Indication: Hepatitis B
     Dosage: 5075 MILLIGRAM, DAILY
     Route: 065
  20. FUROSEMIDE\SPIRONOLACTONE [Suspect]
     Active Substance: FUROSEMIDE\SPIRONOLACTONE
     Indication: Hepatitis E
  21. ACETIC ACID [Concomitant]
     Active Substance: ACETIC ACID
     Indication: Hepatitis E
     Dosage: UNK
     Route: 065
  22. ACETIC ACID [Concomitant]
     Active Substance: ACETIC ACID
     Indication: Hepatitis B

REACTIONS (1)
  - Treatment failure [Unknown]
